FAERS Safety Report 21841969 (Version 1)
Quarter: 2023Q1

REPORT INFORMATION
  Report Type: Spontaneous
  Country: DE (occurrence: DE)
  Receive Date: 20230110
  Receipt Date: 20230110
  Transmission Date: 20230417
  Serious: Yes (Hospitalization, Other)
  Sender: FDA-Public Use
  Company Number: None

PATIENT
  Age: 1 Day
  Sex: Female
  Weight: 3.89 kg

DRUGS (6)
  1. QUETIAPINE [Suspect]
     Active Substance: QUETIAPINE
     Dosage: 150 MG/D
     Dates: start: 20201229, end: 20211007
  2. SERTRALINE [Suspect]
     Active Substance: SERTRALINE HYDROCHLORIDE
     Dosage: 100 MG/D
     Dates: start: 20201229, end: 20211007
  3. LAMOTRIGINE [Suspect]
     Active Substance: LAMOTRIGINE
     Dosage: 175 MG/D (75-0-100 MG)
     Dates: start: 20201229, end: 20211007
  4. TOZINAMERAN [Concomitant]
     Active Substance: TOZINAMERAN
  5. LEVOTHYROXINE SODIUM [Concomitant]
     Active Substance: LEVOTHYROXINE SODIUM
     Dosage: 100 MCG/D
     Dates: start: 20201229, end: 20211007
  6. TOZINAMERAN [Concomitant]
     Active Substance: TOZINAMERAN
     Dosage: 38. - 38. GESTATIONAL WEEK
     Dates: start: 20210921, end: 20210921

REACTIONS (2)
  - Respiratory disorder neonatal [Recovered/Resolved]
  - Foetal exposure during pregnancy [Unknown]

NARRATIVE: CASE EVENT DATE: 20211001
